FAERS Safety Report 25450023 (Version 1)
Quarter: 2025Q2

REPORT INFORMATION
  Report Type: Other
  Country: FR (occurrence: FR)
  Receive Date: 20250618
  Receipt Date: 20250618
  Transmission Date: 20250717
  Serious: Yes (Other)
  Sender: ZYDUS PHARM
  Company Number: None

PATIENT

DRUGS (11)
  1. AMIODARONE [Interacting]
     Active Substance: AMIODARONE
     Indication: Atrial fibrillation
     Route: 048
     Dates: start: 20250128
  2. DULOXETINE [Interacting]
     Active Substance: DULOXETINE
     Indication: Mixed anxiety and depressive disorder
     Route: 048
     Dates: start: 2023, end: 20250516
  3. MIRTAZAPINE [Interacting]
     Active Substance: MIRTAZAPINE
     Indication: Mixed anxiety and depressive disorder
     Route: 048
     Dates: start: 2023
  4. PRAZEPAM [Concomitant]
     Active Substance: PRAZEPAM
     Indication: Mixed anxiety and depressive disorder
     Route: 048
     Dates: start: 2023
  5. LANSOPRAZOLE [Concomitant]
     Active Substance: LANSOPRAZOLE
     Indication: Product used for unknown indication
     Route: 048
     Dates: start: 20250209
  6. FUROSEMIDE [Concomitant]
     Active Substance: FUROSEMIDE
     Indication: Dilated cardiomyopathy
     Route: 048
     Dates: start: 20250128
  7. SPIRONOLACTONE [Concomitant]
     Active Substance: SPIRONOLACTONE
     Indication: Dilated cardiomyopathy
     Route: 048
     Dates: start: 20250210
  8. DAPAGLIFLOZIN [Concomitant]
     Active Substance: DAPAGLIFLOZIN
     Indication: Dilated cardiomyopathy
     Route: 048
     Dates: start: 20250211
  9. APIXABAN [Concomitant]
     Active Substance: APIXABAN
     Indication: Dilated cardiomyopathy
     Route: 048
     Dates: start: 20250212
  10. BISOPROLOL FUMARATE [Concomitant]
     Active Substance: BISOPROLOL FUMARATE
     Indication: Dilated cardiomyopathy
     Route: 048
     Dates: start: 20250218
  11. ENTRESTO [Concomitant]
     Active Substance: SACUBITRIL\VALSARTAN
     Indication: Dilated cardiomyopathy
     Route: 048
     Dates: start: 20250218

REACTIONS (1)
  - Serotonin syndrome [Not Recovered/Not Resolved]

NARRATIVE: CASE EVENT DATE: 20250301
